FAERS Safety Report 7837589-6 (Version None)
Quarter: 2011Q4

REPORT INFORMATION
  Report Type: 
  Country: None (occurrence: None)
  Receive Date: 20111024
  Receipt Date: 20110620
  Transmission Date: 20120403
  Serious: No
  Sender: FDA-Public Use
  Company Number: US-ABBOTT-11P-163-0720598-00

PATIENT
  Sex: Female

DRUGS (1)
  1. LUPRON DEPOT [Suspect]
     Indication: ENDOMETRIOSIS
     Route: 030
     Dates: start: 20110201

REACTIONS (6)
  - SKIN DISCOLOURATION [None]
  - PELVIC PAIN [None]
  - PERIPHERAL COLDNESS [None]
  - ARTHRALGIA [None]
  - MOOD SWINGS [None]
  - ABDOMINAL PAIN [None]
